FAERS Safety Report 4994579-9 (Version None)
Quarter: 2006Q2

REPORT INFORMATION
  Report Type: 
  Country: None (occurrence: None)
  Receive Date: 20060505
  Receipt Date: 20051101
  Transmission Date: 20061013
  Serious: Yes (Hospitalization)
  Sender: FDA-Public Use
  Company Number: US-MERCK-0511USA00527

PATIENT
  Age: 65 Year
  Sex: Female
  Weight: 86 kg

DRUGS (7)
  1. VIOXX [Suspect]
     Indication: ARTHRITIS
     Route: 048
     Dates: start: 19990101, end: 20040101
  2. VIOXX [Suspect]
     Route: 048
     Dates: start: 20000301, end: 20021101
  3. SYNTHROID [Concomitant]
     Route: 065
  4. PAXIL [Concomitant]
     Route: 065
  5. LORAZEPAM [Concomitant]
     Route: 065
  6. ENALAPRIL MALEATE [Concomitant]
     Route: 065
  7. PREMARIN [Concomitant]
     Route: 065

REACTIONS (13)
  - ANXIETY [None]
  - AORTIC ARTERIOSCLEROSIS [None]
  - CARDIOMEGALY [None]
  - CHEST PAIN [None]
  - CONGESTIVE CARDIOMYOPATHY [None]
  - CORONARY ARTERY DISEASE [None]
  - DEPRESSION [None]
  - ELECTROCARDIOGRAM ABNORMAL [None]
  - HYPERTENSION [None]
  - INJURY [None]
  - MYOCARDIAL INFARCTION [None]
  - PALPITATIONS [None]
  - VENTRICULAR DYSFUNCTION [None]
